FAERS Safety Report 4895054-2 (Version None)
Quarter: 2006Q1

REPORT INFORMATION
  Report Type: 
  Country: None (occurrence: None)
  Receive Date: 20060130
  Receipt Date: 20051207
  Transmission Date: 20060701
  Serious: No
  Sender: FDA-Public Use
  Company Number: US-BRISTOL-MYERS SQUIBB COMPANY-13206834

PATIENT
  Age: 45 Year
  Sex: Female
  Weight: 116 kg

DRUGS (4)
  1. GLUCOVANCE [Suspect]
     Indication: POLYCYSTIC OVARIES
     Dosage: DOSAGE FORM = 2.5MG/500MG
     Dates: start: 20030901
  2. METFORMIN HCL [Suspect]
     Indication: POLYCYSTIC OVARIES
     Dates: start: 20030801, end: 20030901
  3. DIOVAN [Concomitant]
  4. HYDROCHLOROTHIAZIDE [Concomitant]

REACTIONS (2)
  - BLOOD GLUCOSE INCREASED [None]
  - PAIN IN EXTREMITY [None]
